FAERS Safety Report 9677107 (Version 1)
Quarter: 2013Q4

REPORT INFORMATION
  Report Type: Spontaneous
  Country: US (occurrence: US)
  Receive Date: 20131108
  Receipt Date: 20131108
  Transmission Date: 20140711
  Serious: No
  Sender: FDA-Public Use
  Company Number: US-009507513-1311USA002819

PATIENT
  Age: 23 Year
  Sex: Female

DRUGS (2)
  1. NEXPLANON [Suspect]
     Indication: CONTRACEPTION
     Dosage: UNK
     Route: 059
     Dates: start: 20130624
  2. KLONOPIN [Concomitant]
     Dosage: 1 MG, TID

REACTIONS (1)
  - Menorrhagia [Not Recovered/Not Resolved]
